FAERS Safety Report 18255120 (Version 1)
Quarter: 2020Q3

REPORT INFORMATION
  Report Type: Spontaneous
  Country: US (occurrence: US)
  Receive Date: 20200910
  Receipt Date: 20200910
  Transmission Date: 20201103
  Serious: No
  Sender: FDA-Public Use
  Company Number: US-SHIRE-US202029085

PATIENT
  Sex: Female
  Weight: 85 kg

DRUGS (2)
  1. MOTEGRITY [Suspect]
     Active Substance: PRUCALOPRIDE SUCCINATE
     Indication: CONSTIPATION
     Dosage: 2 MILLIGRAM, 1X/DAY:QD
     Route: 065
  2. DROXIDOPA [Concomitant]
     Active Substance: DROXIDOPA
     Indication: PRODUCT USED FOR UNKNOWN INDICATION

REACTIONS (2)
  - Dysphagia [Unknown]
  - Wrong technique in product usage process [Unknown]
